FAERS Safety Report 12674453 (Version 1)
Quarter: 2016Q3

REPORT INFORMATION
  Report Type: Spontaneous
  Country: US (occurrence: US)
  Receive Date: 20160822
  Receipt Date: 20160822
  Transmission Date: 20161109
  Serious: No
  Sender: FDA-Public Use
  Company Number: US-BEH-2016060456

PATIENT
  Sex: Female
  Weight: 120.2 kg

DRUGS (13)
  1. GABAPENTIN. [Concomitant]
     Active Substance: GABAPENTIN
  2. DIPHENHYDRAMINE. [Concomitant]
     Active Substance: DIPHENHYDRAMINE
  3. ATENOLOL. [Concomitant]
     Active Substance: ATENOLOL
  4. SYNTHROID [Concomitant]
     Active Substance: LEVOTHYROXINE SODIUM
  5. EPIPEN [Concomitant]
     Active Substance: EPINEPHRINE
  6. ZEMAIRA [Suspect]
     Active Substance: .ALPHA.1-PROTEINASE INHIBITOR HUMAN
     Indication: ALPHA-1 ANTI-TRYPSIN DEFICIENCY
     Route: 042
  7. LOSARTAN. [Concomitant]
     Active Substance: LOSARTAN
  8. RAMIPRIL. [Concomitant]
     Active Substance: RAMIPRIL
  9. IBUPROFEN. [Concomitant]
     Active Substance: IBUPROFEN
  10. OXYGEN. [Concomitant]
     Active Substance: OXYGEN
  11. LIDOCAINE-PRILOCAINE [Concomitant]
     Active Substance: LIDOCAINE\PRILOCAINE
  12. SODIUM CHLORIDE. [Concomitant]
     Active Substance: SODIUM CHLORIDE
  13. HEPARIN [Concomitant]
     Active Substance: HEPARIN SODIUM

REACTIONS (2)
  - Aphthous ulcer [Unknown]
  - Infection [Unknown]
